FAERS Safety Report 6142857-2 (Version None)
Quarter: 2009Q2

REPORT INFORMATION
  Report Type: 
  Country: None (occurrence: None)
  Receive Date: 20090403
  Receipt Date: 20090326
  Transmission Date: 20091009
  Serious: Yes (Death, Other)
  Sender: FDA-Public Use
  Company Number: US-AMGEN-QUU340346

PATIENT
  Sex: Male

DRUGS (10)
  1. NEULASTA [Suspect]
     Indication: CHEMOTHERAPY
     Route: 065
     Dates: start: 20090224
  2. DOCETAXEL [Suspect]
     Route: 042
     Dates: start: 20090223, end: 20090223
  3. DEXAMETHASONE [Concomitant]
     Dates: start: 20090201
  4. ALOXI [Concomitant]
     Dates: start: 20090201
  5. MORPHINE [Concomitant]
  6. COZAAR [Concomitant]
  7. ZOCOR [Concomitant]
  8. CASODEX (ASTRA ZENECA) [Concomitant]
  9. ASPIRIN [Concomitant]
  10. PREDNISONE [Concomitant]

REACTIONS (5)
  - BODY TEMPERATURE INCREASED [None]
  - INCOHERENT [None]
  - NEUTROPENIA [None]
  - PAIN [None]
  - SEPSIS [None]
